FAERS Safety Report 17906690 (Version 1)
Quarter: 2020Q2

REPORT INFORMATION
  Report Type: Spontaneous
  Country: US (occurrence: US)
  Receive Date: 20200616
  Receipt Date: 20200616
  Transmission Date: 20200714
  Serious: No
  Sender: FDA-Public Use
  Company Number: US-ROCHE-2398045

PATIENT
  Sex: Female

DRUGS (20)
  1. ECONAZOLE NITRATE. [Concomitant]
     Active Substance: ECONAZOLE NITRATE
  2. PREDNISONE. [Concomitant]
     Active Substance: PREDNISONE
  3. OMEPRAZOLE. [Concomitant]
     Active Substance: OMEPRAZOLE
  4. CLOBETASOL [Concomitant]
     Active Substance: CLOBETASOL
  5. MOBIC [Concomitant]
     Active Substance: MELOXICAM
  6. NORVASC [Concomitant]
     Active Substance: AMLODIPINE BESYLATE
  7. ACTEMRA [Suspect]
     Active Substance: TOCILIZUMAB
     Indication: RHEUMATOID FACTOR INCREASED
  8. ARAVA [Concomitant]
     Active Substance: LEFLUNOMIDE
  9. PAXIL [Concomitant]
     Active Substance: PAROXETINE HYDROCHLORIDE
  10. XANAX [Concomitant]
     Active Substance: ALPRAZOLAM
  11. METHOTREXATE. [Concomitant]
     Active Substance: METHOTREXATE
  12. LEFLUNOMIDE. [Concomitant]
     Active Substance: LEFLUNOMIDE
  13. FISH OIL [Concomitant]
     Active Substance: FISH OIL
  14. ANAFRANIL [Concomitant]
     Active Substance: CLOMIPRAMINE HYDROCHLORIDE
  15. ACTEMRA [Suspect]
     Active Substance: TOCILIZUMAB
     Indication: RHEUMATOID ARTHRITIS
     Dosage: ONGOING:YES
     Route: 058
     Dates: start: 20160714
  16. VITAMIN D3 [Concomitant]
     Active Substance: CHOLECALCIFEROL
  17. CONCERTA [Concomitant]
     Active Substance: METHYLPHENIDATE HYDROCHLORIDE
  18. RITALIN [Concomitant]
     Active Substance: METHYLPHENIDATE HYDROCHLORIDE
  19. DETROL [Concomitant]
     Active Substance: TOLTERODINE TARTRATE
  20. FOLIC ACID. [Concomitant]
     Active Substance: FOLIC ACID

REACTIONS (5)
  - Device issue [Unknown]
  - Injection site extravasation [Unknown]
  - Swelling [Unknown]
  - Discomfort [Unknown]
  - Skin tightness [Unknown]
